FAERS Safety Report 12959671 (Version 1)
Quarter: 2016Q4

REPORT INFORMATION
  Report Type: Spontaneous
  Country: US (occurrence: US)
  Receive Date: 20161118
  Receipt Date: 20161118
  Transmission Date: 20170207
  Serious: No
  Sender: FDA-Public Use
  Company Number: None

PATIENT
  Age: 22 Year
  Sex: Male
  Weight: 138.6 kg

DRUGS (1)
  1. XYREM [Suspect]
     Active Substance: SODIUM OXYBATE
     Indication: NARCOLEPSY
     Dosage: ?          QUANTITY:3 BOTTLES;OTHER FREQUENCY:BEDTIME + 2.5-4 HR;?
     Route: 048
     Dates: start: 20160801

REACTIONS (8)
  - Narcolepsy [None]
  - Educational problem [None]
  - Abdominal pain [None]
  - Diarrhoea [None]
  - Product quality issue [None]
  - Disease recurrence [None]
  - Headache [None]
  - Malaise [None]

NARRATIVE: CASE EVENT DATE: 20161117
